FAERS Safety Report 6696159-6 (Version None)
Quarter: 2010Q2

REPORT INFORMATION
  Report Type: 
  Country: None (occurrence: None)
  Receive Date: 20100426
  Receipt Date: 20100415
  Transmission Date: 20101027
  Serious: Yes (Other)
  Sender: FDA-Public Use
  Company Number: SE-AMGEN-US405856

PATIENT
  Sex: Female
  Weight: 54 kg

DRUGS (4)
  1. ENBREL [Suspect]
     Indication: RHEUMATOID ARTHRITIS
     Dosage: DOSE 50 MG WEEKLY
     Route: 058
     Dates: start: 20090720, end: 20100228
  2. KALCIPOS [Concomitant]
     Indication: RHEUMATOID ARTHRITIS
  3. ACETAMINOPHEN [Concomitant]
     Indication: RHEUMATOID ARTHRITIS
     Dosage: DOSE 1 G WHEN NEEDED
  4. PREDNISOLON [Concomitant]
     Indication: RHEUMATOID ARTHRITIS

REACTIONS (2)
  - DRUG EXPOSURE DURING PREGNANCY [None]
  - INTRA-UTERINE DEATH [None]
